FAERS Safety Report 6788795-3 (Version None)
Quarter: 2010Q2

REPORT INFORMATION
  Report Type: 
  Country: None (occurrence: None)
  Receive Date: 20100621
  Receipt Date: 20100609
  Transmission Date: 20101027
  Serious: Yes (Other)
  Sender: FDA-Public Use
  Company Number: US-1182160

PATIENT
  Sex: Female

DRUGS (1)
  1. SYSTANE EYE DROPS [Suspect]
     Indication: DRY EYE
     Dosage: (OPHTHALMIC)
     Route: 047
     Dates: start: 20090101

REACTIONS (2)
  - CORNEAL OEDEMA [None]
  - VISUAL ACUITY REDUCED [None]
